FAERS Safety Report 16974269 (Version 1)
Quarter: 2019Q4

REPORT INFORMATION
  Report Type: Spontaneous
  Country: FR (occurrence: FR)
  Receive Date: 20191030
  Receipt Date: 20191030
  Transmission Date: 20200122
  Serious: Yes (Other)
  Sender: FDA-Public Use
  Company Number: FR-TEVA-2019-FR-1129303

PATIENT
  Age: 68 Year
  Sex: Female
  Weight: 82 kg

DRUGS (6)
  1. FLUOROURACILE TEVA 5000 MG/100 ML, SOLUTION POUR PERFUSION [Concomitant]
     Indication: CHEMOTHERAPY
     Route: 041
     Dates: start: 20190725
  2. ATROPINE (SULFATE) AGUETTANT 0,25 MG/ML, SOLUTION INJECTABLE [Concomitant]
     Active Substance: ATROPINE SULFATE
     Indication: PREMEDICATION
     Route: 058
     Dates: start: 20190725
  3. METHYLPREDNISOLONE MYLAN [Concomitant]
     Active Substance: METHYLPREDNISOLONE
     Indication: PREMEDICATION
     Route: 041
     Dates: start: 20190725
  4. IRINOTECAN MEDAC 20 MG/ML, SOLUTION ? DILUER POUR PERFUSION [Concomitant]
     Active Substance: IRINOTECAN
     Indication: CHEMOTHERAPY
     Route: 041
     Dates: start: 20190725
  5. OXALIPLATINE TEVA 5 MG/ML, SOLUTION ? DILUER POUR PERFUSION [Suspect]
     Active Substance: OXALIPLATIN
     Indication: CHEMOTHERAPY
     Route: 041
     Dates: start: 20190725
  6. ONDANSETRON ACCORD 2 MG/ML, SOLUTION INJECTABLE [Concomitant]
     Active Substance: ONDANSETRON HYDROCHLORIDE
     Indication: PREMEDICATION
     Route: 041
     Dates: start: 20190725

REACTIONS (1)
  - Type I hypersensitivity [Recovered/Resolved]

NARRATIVE: CASE EVENT DATE: 20190725
